FAERS Safety Report 5851076-6 (Version None)
Quarter: 2008Q3

REPORT INFORMATION
  Report Type: 
  Country: None (occurrence: None)
  Receive Date: 20080820
  Receipt Date: 20080620
  Transmission Date: 20090109
  Serious: No
  Sender: FDA-Public Use
  Company Number: US-BAYER-200827065NA

PATIENT
  Age: 43 Year
  Sex: Female
  Weight: 84 kg

DRUGS (1)
  1. MAGNEVIST [Suspect]
     Indication: NUCLEAR MAGNETIC RESONANCE IMAGING
     Dosage: TOTAL DAILY DOSE: 17 ML  UNIT DOSE: 20 ML
     Route: 042
     Dates: start: 20080619, end: 20080619

REACTIONS (5)
  - ERYTHEMA [None]
  - OEDEMA PERIPHERAL [None]
  - RESPIRATORY RATE INCREASED [None]
  - RHINORRHOEA [None]
  - URTICARIA [None]
